FAERS Safety Report 9361188 (Version 6)
Quarter: 2014Q2

REPORT INFORMATION
  Report Type: Report from Study
  Country: JP (occurrence: JP)
  Receive Date: 20130621
  Receipt Date: 20140422
  Transmission Date: 20141212
  Serious: Yes (Death, Hospitalization)
  Sender: FDA-Public Use
  Company Number: JP-JNJFOC-20130611047

PATIENT
  Age: 67 Year
  Sex: Female
  Weight: 47 kg

DRUGS (23)
  1. STELARA [Suspect]
     Indication: ERYTHRODERMIC PSORIASIS
     Route: 058
     Dates: start: 20120225, end: 20130225
  2. STELARA [Suspect]
     Indication: ERYTHRODERMIC PSORIASIS
     Route: 058
     Dates: start: 20121203, end: 20121203
  3. STELARA [Suspect]
     Indication: ERYTHRODERMIC PSORIASIS
     Route: 058
     Dates: start: 20120910, end: 20120910
  4. STELARA [Suspect]
     Indication: ERYTHRODERMIC PSORIASIS
     Route: 058
     Dates: start: 20120618, end: 20120618
  5. STELARA [Suspect]
     Indication: ERYTHRODERMIC PSORIASIS
     Route: 058
     Dates: start: 20120326, end: 20120326
  6. STELARA [Suspect]
     Indication: ERYTHRODERMIC PSORIASIS
     Route: 058
     Dates: start: 20120228, end: 20120228
  7. ANTEBATE [Concomitant]
     Indication: PSORIASIS
     Route: 061
  8. ANTEBATE [Concomitant]
     Indication: ERYTHRODERMIC PSORIASIS
     Route: 061
  9. ALLELOCK [Concomitant]
     Indication: PSORIASIS
     Route: 048
  10. ALLELOCK [Concomitant]
     Indication: ERYTHRODERMIC PSORIASIS
     Route: 048
  11. DERMOVATE [Concomitant]
     Indication: PSORIASIS
     Route: 061
  12. DERMOVATE [Concomitant]
     Indication: ERYTHRODERMIC PSORIASIS
     Route: 061
  13. MYSER [Concomitant]
     Indication: PSORIASIS
     Route: 061
     Dates: start: 20120820
  14. MYSER [Concomitant]
     Indication: ERYTHRODERMIC PSORIASIS
     Route: 061
     Dates: start: 20120820
  15. TALION [Concomitant]
     Indication: PSORIASIS
     Route: 048
     Dates: start: 20120820
  16. TALION [Concomitant]
     Indication: ERYTHRODERMIC PSORIASIS
     Route: 048
     Dates: start: 20120820
  17. LIMAS [Concomitant]
     Indication: BIPOLAR DISORDER
     Route: 048
     Dates: end: 20130626
  18. ZYPREXA [Concomitant]
     Indication: BIPOLAR DISORDER
     Route: 048
     Dates: end: 20130626
  19. ROHYPNOL [Concomitant]
     Indication: INSOMNIA
     Route: 048
     Dates: end: 20130626
  20. SEROQUEL [Concomitant]
     Indication: BIPOLAR DISORDER
     Route: 048
     Dates: end: 20130626
  21. LORAZEPAM [Concomitant]
     Indication: INSOMNIA
     Route: 048
     Dates: end: 20130626
  22. HALCION [Concomitant]
     Indication: INSOMNIA
     Route: 048
     Dates: end: 20130626
  23. SERENACE [Concomitant]
     Indication: BIPOLAR DISORDER
     Route: 048
     Dates: end: 20130626

REACTIONS (2)
  - Gallbladder cancer [Fatal]
  - Off label use [Unknown]
